FAERS Safety Report 20054389 (Version 1)
Quarter: 2021Q4

REPORT INFORMATION
  Report Type: Spontaneous
  Country: CA (occurrence: CA)
  Receive Date: 20211110
  Receipt Date: 20211110
  Transmission Date: 20220303
  Serious: Yes (Death, Other)
  Sender: FDA-Public Use
  Company Number: CA-PFIZER INC-202101512304

PATIENT
  Age: 78 Year
  Sex: Female

DRUGS (15)
  1. REVATIO [Suspect]
     Active Substance: SILDENAFIL CITRATE
     Indication: Pulmonary hypertension
     Dosage: 20 MG, 3X/DAY (TID)
     Route: 048
     Dates: start: 20180824
  2. OPSUMIT [Concomitant]
     Active Substance: MACITENTAN
  3. UPTRAVI [Concomitant]
     Active Substance: SELEXIPAG
  4. CLOPIDOGREL [Concomitant]
     Active Substance: CLOPIDOGREL BISULFATE
  5. GLICLAZIDE [Concomitant]
     Active Substance: GLICLAZIDE
  6. RABEPRAZOLE [Concomitant]
     Active Substance: RABEPRAZOLE
  7. ATORVASTATIN [Concomitant]
     Active Substance: ATORVASTATIN
  8. CANDESARTAN [Concomitant]
     Active Substance: CANDESARTAN
  9. FUROSEMIDE [Concomitant]
     Active Substance: FUROSEMIDE
  10. ASPIRIN [Concomitant]
     Active Substance: ASPIRIN
  11. LINAGLIPTIN [Concomitant]
     Active Substance: LINAGLIPTIN
  12. IRON [Concomitant]
     Active Substance: IRON
  13. POTASSIUM [Concomitant]
     Active Substance: POTASSIUM
  14. METOLAZONE [Concomitant]
     Active Substance: METOLAZONE
  15. ALLOPURINOL [Concomitant]
     Active Substance: ALLOPURINOL

REACTIONS (1)
  - Sudden death [Fatal]

NARRATIVE: CASE EVENT DATE: 20210912
